FAERS Safety Report 20421063 (Version 2)
Quarter: 2022Q1

REPORT INFORMATION
  Report Type: Spontaneous
  Country: JP (occurrence: JP)
  Receive Date: 20220203
  Receipt Date: 20220322
  Transmission Date: 20220423
  Serious: No
  Sender: FDA-Public Use
  Company Number: JP-TAKEDA-2022TJP012450

PATIENT
  Age: 55 Year
  Sex: Female

DRUGS (1)
  1. ZEJULA [Suspect]
     Active Substance: NIRAPARIB
     Indication: Ovarian cancer stage IV
     Dosage: UNK
     Route: 048

REACTIONS (2)
  - Blood creatinine increased [Recovered/Resolved]
  - Neutrophil count decreased [Recovered/Resolved]
